FAERS Safety Report 4279666-5 (Version None)
Quarter: 2004Q1

REPORT INFORMATION
  Report Type: 
  Country: None (occurrence: None)
  Receive Date: 20040123
  Receipt Date: 20030109
  Transmission Date: 20041129
  Serious: Yes (Other)
  Sender: FDA-Public Use
  Company Number: KII-2004-0006861

PATIENT
  Age: 33 Year
  Sex: Male

DRUGS (3)
  1. OXYCONTIN TABLETS (OXYCODONE HYDROCHLODIRE) CR TABLET [Suspect]
     Indication: DRUG USE FOR UNKNOWN INDICATION
  2. ACETAMINOPHEN W/OXYCODONE(PARACETAMOL, OXYCODONE HYDROCHLORIDE) [Suspect]
     Indication: DRUG USE FOR UNKNOWN INDICATION
  3. COCAINE (COCAINE) [Suspect]
     Indication: DRUG USE FOR UNKNOWN INDICATION
     Route: 045

REACTIONS (4)
  - COMA [None]
  - CYANOSIS [None]
  - DRUG ABUSER [None]
  - MULTIPLE DRUG OVERDOSE [None]
